FAERS Safety Report 8361170-6 (Version None)
Quarter: 2012Q2

REPORT INFORMATION
  Report Type: 
  Country: None (occurrence: None)
  Receive Date: 20120515
  Receipt Date: 20091230
  Transmission Date: 20120825
  Serious: Yes (Other)
  Sender: FDA-Public Use
  Company Number: DE-ROCHE-686657

PATIENT
  Sex: Female

DRUGS (2)
  1. XELODA [Suspect]
     Indication: COLORECTAL CANCER
     Dosage: 2000 MG IN THE MORNING AND 1500 MG IN THE EVENING.
     Route: 065
  2. XELODA [Suspect]
     Dosage: 1500 MG IN THE MORNING AND 1000 MG IN THE EVENING.
     Route: 065

REACTIONS (2)
  - PALMAR-PLANTAR ERYTHRODYSAESTHESIA SYNDROME [None]
  - METASTASES TO LIVER [None]
